FAERS Safety Report 9150070 (Version 1)
Quarter: 2013Q1

REPORT INFORMATION
  Report Type: Spontaneous
  Country: US (occurrence: None)
  Receive Date: 20130204
  Receipt Date: 20130204
  Transmission Date: 20140127
  Serious: Yes (Other)
  Sender: FDA-Public Use
  Company Number: FK201300238

PATIENT
  Age: 40 Year
  Sex: Female

DRUGS (1)
  1. DEXAMETHASONE [Suspect]
     Indication: SECONDARY ADRENOCORTICAL INSUFFICIENCY

REACTIONS (1)
  - Diabetes insipidus [None]
